FAERS Safety Report 9023427 (Version 2)
Quarter: 2013Q1

REPORT INFORMATION
  Report Type: Report from Study
  Country: GR (occurrence: GR)
  Receive Date: 20130121
  Receipt Date: 20130329
  Transmission Date: 20140127
  Serious: Yes (Death, Hospitalization)
  Sender: FDA-Public Use
  Company Number: GR-ABBOTT-13P-066-1038559-00

PATIENT
  Age: 66 None
  Sex: Male
  Weight: 68 kg

DRUGS (8)
  1. ZEMPLAR [Suspect]
     Indication: HAEMODIALYSIS
     Dosage: TOTAL DOSE 7.5
     Route: 042
     Dates: start: 20120501, end: 20121116
  2. ZEMPLAR [Suspect]
     Indication: HYPERPARATHYROIDISM
  3. ZESTRIL [Concomitant]
     Indication: HYPERTENSION
     Dosage: 0.5/DAY
     Route: 048
     Dates: start: 20070206
  4. INDERAL [Concomitant]
     Indication: HYPERTENSION
     Dosage: 0.5/DAY
     Route: 048
     Dates: start: 20111013
  5. PLAVIX [Concomitant]
     Indication: RENAL FAILURE CHRONIC
     Dates: start: 20111028
  6. PLAVIX [Concomitant]
     Indication: ARTERIOVENOUS FISTULA
  7. FOSRENOL [Concomitant]
     Indication: HYPERPHOSPHATAEMIA
     Route: 048
     Dates: start: 20080208
  8. MIMPARA [Concomitant]
     Indication: HYPERPARATHYROIDISM SECONDARY
     Route: 048
     Dates: start: 20121116

REACTIONS (2)
  - Acute myocardial infarction [Fatal]
  - Cardiac arrest [Fatal]
